FAERS Safety Report 8961063 (Version 1)
Quarter: 2012Q4

REPORT INFORMATION
  Report Type: 
  Country: US (occurrence: US)
  Receive Date: 20121213
  Receipt Date: 20121213
  Transmission Date: 20130627
  Serious: Yes (Other)
  Sender: FDA-Public Use
  Company Number: US-BAYER-2012-128716

PATIENT
  Sex: Female

DRUGS (1)
  1. MIRENA [Suspect]
     Dosage: 20 mcg/24hr, CONT
     Route: 015

REACTIONS (10)
  - Genital haemorrhage [None]
  - Infertility female [None]
  - Fungal infection [None]
  - Vaginal infection [None]
  - Ovarian cyst [None]
  - Endometriosis [None]
  - Thyroid disorder [None]
  - Adenomyosis [None]
  - Mood swings [None]
  - Weight increased [None]
